FAERS Safety Report 7102893-6 (Version None)
Quarter: 2010Q4

REPORT INFORMATION
  Report Type: 
  Country: None (occurrence: None)
  Receive Date: 20101115
  Receipt Date: 20101110
  Transmission Date: 20110411
  Serious: Yes (Life-Threatening, Hospitalization, Disabling, Other)
  Sender: FDA-Public Use
  Company Number: CN-ASTRAZENECA-2010SE53621

PATIENT

DRUGS (2)
  1. BETALOC ZOK [Suspect]
     Route: 048
  2. PROPAFENONE HCL [Concomitant]
     Indication: EXTRASYSTOLES
     Route: 048

REACTIONS (6)
  - APALLIC SYNDROME [None]
  - DRUG ADMINISTRATION ERROR [None]
  - FALL [None]
  - HYPOTENSION [None]
  - SYNCOPE [None]
  - TRAUMATIC BRAIN INJURY [None]
